FAERS Safety Report 8304416-2 (Version None)
Quarter: 2012Q2

REPORT INFORMATION
  Report Type: 
  Country: None (occurrence: None)
  Receive Date: 20120423
  Receipt Date: 20120416
  Transmission Date: 20120825
  Serious: Yes (Hospitalization)
  Sender: FDA-Public Use
  Company Number: US-BAYER-2011-028739

PATIENT
  Age: 33 Year
  Sex: Female

DRUGS (3)
  1. DROSPIRENONE AND ETHINYL ESTRADIOL [Suspect]
     Indication: POLYCYSTIC OVARIES
     Dosage: UNK
     Route: 048
     Dates: start: 20080101, end: 20100101
  2. THYROLAR [Concomitant]
     Indication: HYPOTHYROIDISM
     Dosage: UNK
     Route: 048
     Dates: start: 20000101, end: 20050101
  3. YASMIN [Suspect]
     Indication: POLYCYSTIC OVARIES
     Dosage: UNK
     Route: 048
     Dates: start: 20010101, end: 20080101

REACTIONS (7)
  - ANXIETY [None]
  - ANHEDONIA [None]
  - POST CHOLECYSTECTOMY SYNDROME [None]
  - PSYCHOLOGICAL TRAUMA [None]
  - ABDOMINAL PAIN [None]
  - GALLBLADDER DISORDER [None]
  - GASTROINTESTINAL DISORDER [None]
